FAERS Safety Report 5310083-2 (Version None)
Quarter: 2007Q1

REPORT INFORMATION
  Report Type: 
  Country: None (occurrence: None)
  Receive Date: 20070201
  Receipt Date: 20061013
  Transmission Date: 20070707
  Serious: Yes (Hospitalization)
  Sender: FDA-Public Use
  Company Number: US-2006-016419

PATIENT
  Age: 27 Year
  Sex: Female
  Weight: 59.9 kg

DRUGS (2)
  1. MIRENA [Suspect]
     Indication: DYSFUNCTIONAL UTERINE BLEEDING
     Dosage: 20 US/DAY, CONT, INTRA-UTERINE
     Route: 015
     Dates: start: 20050415, end: 20060901
  2. NUVARING [Concomitant]

REACTIONS (1)
  - IUD MIGRATION [None]
